FAERS Safety Report 25349437 (Version 1)
Quarter: 2025Q2

REPORT INFORMATION
  Report Type: Spontaneous
  Country: US (occurrence: US)
  Receive Date: 20250522
  Receipt Date: 20250522
  Transmission Date: 20250717
  Serious: No
  Sender: AMGEN
  Company Number: US-AMGEN-USASP2025098060

PATIENT
  Age: 34 Year
  Sex: Female

DRUGS (2)
  1. TEPEZZA [Suspect]
     Active Substance: TEPROTUMUMAB-TRBW
     Indication: Endocrine ophthalmopathy
     Dosage: 10 MILLIGRAM/KILOGRAM, Q3WK (10MG/KG FOR 1ST INFUSION)
     Route: 040
  2. TEPEZZA [Suspect]
     Active Substance: TEPROTUMUMAB-TRBW
     Dosage: 20 MILLIGRAM/KILOGRAM, Q3WK (FOLLOWED BY 20MG/KG EVERY 3 WEEKS FOR 7 ADDITIONAL INFUSIONS)
     Route: 040

REACTIONS (3)
  - Myalgia [Recovered/Resolved]
  - Diarrhoea [Recovered/Resolved]
  - Hyperglycaemia [Recovered/Resolved]

NARRATIVE: CASE EVENT DATE: 20240912
